FAERS Safety Report 4337346-1 (Version None)
Quarter: 2004Q2

REPORT INFORMATION
  Report Type: 
  Country: None (occurrence: None)
  Receive Date: 20040407
  Receipt Date: 20040324
  Transmission Date: 20050107
  Serious: Yes (Death, Hospitalization, Other)
  Sender: FDA-Public Use
  Company Number: JP_040302858

PATIENT
  Age: 74 Year
  Sex: Male
  Weight: 161 kg

DRUGS (7)
  1. VINCRISTINE SULFATE [Suspect]
     Indication: SMALL INTESTINE CARCINOMA
     Dates: start: 20010501
  2. CYCLOPHOSPHAMIDE [Concomitant]
  3. DOXORUBICIN HCL [Concomitant]
  4. PREDNISOLONE [Concomitant]
  5. CYTARABINE [Concomitant]
  6. DEXAMETHASONE [Concomitant]
  7. ETOPOSIDE [Concomitant]

REACTIONS (6)
  - FIBROSIS [None]
  - GASTROINTESTINAL NECROSIS [None]
  - NEOPLASM RECURRENCE [None]
  - PNEUMONIA FUNGAL [None]
  - SCAR [None]
  - SMALL INTESTINE CARCINOMA [None]
